FAERS Safety Report 15339745 (Version 1)
Quarter: 2018Q3

REPORT INFORMATION
  Report Type: Spontaneous
  Country: US (occurrence: US)
  Receive Date: 20180831
  Receipt Date: 20180831
  Transmission Date: 20181010
  Serious: No
  Sender: FDA-Public Use
  Company Number: US-BAYER-2018-162226

PATIENT
  Age: 30 Year
  Sex: Male
  Weight: 82 kg

DRUGS (2)
  1. ALEVE [Suspect]
     Active Substance: NAPROXEN SODIUM
     Indication: PAIN
     Dosage: 2 DF, UNK
     Route: 048
  2. ALEVE [Suspect]
     Active Substance: NAPROXEN SODIUM
     Indication: PAIN
     Dosage: DOSE REDUCED

REACTIONS (2)
  - Drug effect incomplete [Unknown]
  - Extra dose administered [Unknown]

NARRATIVE: CASE EVENT DATE: 20180827
